FAERS Safety Report 6388969-X (Version None)
Quarter: 2009Q4

REPORT INFORMATION
  Report Type: 
  Country: None (occurrence: None)
  Receive Date: 20091001
  Receipt Date: 20090922
  Transmission Date: 20100525
  Serious: Yes (Hospitalization)
  Sender: FDA-Public Use
  Company Number: ADR28642009

PATIENT
  Age: 65 Year
  Sex: Male

DRUGS (1)
  1. RAMIPRIL [Suspect]
     Indication: HYPERTENSION
     Dosage: 2.5MG, ORAL
     Route: 048
     Dates: start: 20080319, end: 20080618

REACTIONS (3)
  - GRAND MAL CONVULSION [None]
  - HERNIA REPAIR [None]
  - HYPONATRAEMIA [None]
